FAERS Safety Report 8759946 (Version 1)
Quarter: 2012Q4

REPORT INFORMATION
  Report Type: 
  Country: US (occurrence: US)
  Receive Date: 20120829
  Receipt Date: 20120829
  Transmission Date: 20130627
  Serious: Yes (Hospitalization)
  Sender: FDA-Public Use
  Company Number: US-GLAXOSMITHKLINE-A0990775A

PATIENT
  Age: 58 Year
  Sex: Female

DRUGS (1)
  1. ADVAIR [Suspect]
     Indication: ASTHMA
     Route: 055

REACTIONS (14)
  - Colitis [Unknown]
  - Neuropathy peripheral [Unknown]
  - Leukocytosis [Unknown]
  - Hepatic steatosis [Unknown]
  - Candidiasis [Unknown]
  - Oedema peripheral [Unknown]
  - Pain [Unknown]
  - Abasia [Unknown]
  - Dysphonia [Unknown]
  - Pharyngeal disorder [Unknown]
  - Dysphonia [Unknown]
  - Haemoglobin increased [Unknown]
  - Inflammation [Unknown]
  - Laboratory test abnormal [Unknown]
